FAERS Safety Report 7636118-X (Version None)
Quarter: 2011Q3

REPORT INFORMATION
  Report Type: 
  Country: None (occurrence: None)
  Receive Date: 20110719
  Receipt Date: 20110705
  Transmission Date: 20111222
  Serious: Yes (Hospitalization)
  Sender: FDA-Public Use
  Company Number: EU-2011-10113

PATIENT
  Age: 75 Year
  Sex: Female

DRUGS (2)
  1. TORSEMIDE [Suspect]
     Dosage: 10 MG MILLIGRAM(S), QD
  2. SAMSCA [Suspect]
     Indication: INAPPROPRIATE ANTIDIURETIC HORMONE SECRETION
     Dosage: 30 MG MILLIGRAM(S), ORAL
     Route: 048
     Dates: start: 20110401

REACTIONS (3)
  - DEHYDRATION [None]
  - DRUG INEFFECTIVE [None]
  - INAPPROPRIATE ANTIDIURETIC HORMONE SECRETION [None]
